FAERS Safety Report 18088804 (Version 1)
Quarter: 2020Q3

REPORT INFORMATION
  Report Type: Spontaneous
  Country: US (occurrence: US)
  Receive Date: 20200729
  Receipt Date: 20200729
  Transmission Date: 20201103
  Serious: Yes (Other)
  Sender: FDA-Public Use
  Company Number: US-PUMA BIOTECHNOLOGY, LTD.-2020US003411

PATIENT

DRUGS (3)
  1. NERLYNX [Suspect]
     Active Substance: NERATINIB
     Dosage: 3 PILLS, DAILY
     Route: 048
     Dates: start: 20200609, end: 202006
  2. NERLYNX [Suspect]
     Active Substance: NERATINIB
     Dosage: 2 PILLS, DAILY
     Route: 048
     Dates: end: 20200608
  3. NERLYNX [Suspect]
     Active Substance: NERATINIB
     Indication: PRODUCT USED FOR UNKNOWN INDICATION
     Dosage: 3 PILLS, DAILY
     Route: 048

REACTIONS (6)
  - Weight decreased [Unknown]
  - Underdose [Unknown]
  - Constipation [Unknown]
  - Diarrhoea [Unknown]
  - Fatigue [Unknown]
  - Abdominal pain upper [Unknown]

NARRATIVE: CASE EVENT DATE: 202006
